FAERS Safety Report 18264189 (Version 6)
Quarter: 2025Q1

REPORT INFORMATION
  Report Type: Report from Study
  Country: US (occurrence: US)
  Receive Date: 20200914
  Receipt Date: 20250319
  Transmission Date: 20250409
  Serious: Yes (Other)
  Sender: TAKEDA
  Company Number: US-TAKEDA-2020TUS038498

PATIENT
  Sex: Female

DRUGS (11)
  1. IXAZOMIB [Suspect]
     Active Substance: IXAZOMIB
     Indication: Plasma cell myeloma in remission
  2. IXAZOMIB [Suspect]
     Active Substance: IXAZOMIB
     Indication: Plasma cell myeloma
     Dosage: 2.3 MILLIGRAM, QD
     Dates: start: 202301
  3. IXAZOMIB [Suspect]
     Active Substance: IXAZOMIB
     Dosage: 2.3 MILLIGRAM, QD
  4. REVLIMID [Suspect]
     Active Substance: LENALIDOMIDE
     Indication: Plasma cell myeloma
     Dosage: 20 MILLIGRAM, QD
     Dates: start: 201706
  5. REVLIMID [Suspect]
     Active Substance: LENALIDOMIDE
     Dosage: 25 MILLIGRAM, QD
     Dates: start: 201708
  6. REVLIMID [Suspect]
     Active Substance: LENALIDOMIDE
     Dosage: 25 MILLIGRAM, QD
     Dates: start: 20171227
  7. REVLIMID [Suspect]
     Active Substance: LENALIDOMIDE
  8. CALCIUM [Concomitant]
     Active Substance: CALCIUM
  9. DEXAMETHASONE [Concomitant]
     Active Substance: DEXAMETHASONE
  10. VITAMIN D/00107901/ [Concomitant]
  11. XARELTO [Concomitant]
     Active Substance: RIVAROXABAN

REACTIONS (4)
  - Plasma cell myeloma recurrent [Unknown]
  - Illness [Recovered/Resolved]
  - Diarrhoea [Unknown]
  - Product dose omission issue [Unknown]
